FAERS Safety Report 6939001-8 (Version None)
Quarter: 2010Q3

REPORT INFORMATION
  Report Type: 
  Country: None (occurrence: None)
  Receive Date: 20100824
  Receipt Date: 20100621
  Transmission Date: 20110219
  Serious: Yes (Other)
  Sender: FDA-Public Use
  Company Number: US-BAXTER-2010BH016951

PATIENT

DRUGS (9)
  1. CYCLOPHOSPHAMIDE [Suspect]
     Indication: MEDULLOBLASTOMA
     Route: 065
  2. MESNA [Suspect]
     Indication: MEDULLOBLASTOMA
     Route: 065
  3. MELPHALAN [Suspect]
     Indication: MEDULLOBLASTOMA
     Route: 065
  4. ACYCLOVIR [Concomitant]
     Indication: PROPHYLAXIS
     Route: 065
  5. FLUCONAZOLE [Concomitant]
     Indication: PROPHYLAXIS
     Route: 065
  6. PENTAMIDINE ISETHIONATE [Concomitant]
     Indication: PROPHYLAXIS
     Route: 065
  7. CARBOPLATIN [Concomitant]
     Indication: MEDULLOBLASTOMA
     Route: 065
  8. THIOTEPA [Concomitant]
     Indication: MEDULLOBLASTOMA
     Route: 065
  9. ETOPOSIDE [Concomitant]
     Indication: MEDULLOBLASTOMA
     Route: 065

REACTIONS (3)
  - CYSTITIS HAEMORRHAGIC [None]
  - PERICARDIAL EFFUSION [None]
  - PLEURAL EFFUSION [None]
